FAERS Safety Report 9209574 (Version 1)
Quarter: 2013Q2

REPORT INFORMATION
  Report Type: Spontaneous
  Country: US (occurrence: None)
  Receive Date: 20130403
  Receipt Date: 20130403
  Transmission Date: 20140414
  Serious: Yes (Other)
  Sender: FDA-Public Use
  Company Number: None

PATIENT
  Age: 88 Year
  Sex: Male
  Weight: 74.84 kg

DRUGS (1)
  1. TOLNAFTATE [Suspect]
     Indication: FUNGAL INFECTION

REACTIONS (4)
  - Joint swelling [None]
  - Hypoaesthesia [None]
  - Pain in extremity [None]
  - Arthralgia [None]
